FAERS Safety Report 20213483 (Version 1)
Quarter: 2021Q4

REPORT INFORMATION
  Report Type: Spontaneous
  Country: CN (occurrence: None)
  Receive Date: 20211221
  Receipt Date: 20211221
  Transmission Date: 20220303
  Serious: Yes (Other)
  Sender: FDA-Public Use
  Company Number: CN-ROCHE-2980884

PATIENT
  Age: 63 Year
  Sex: Male
  Weight: 70 kg

DRUGS (13)
  1. MABTHERA [Suspect]
     Active Substance: RITUXIMAB
     Indication: Follicular lymphoma
     Dosage: ON 22/APR/2021, 19/MAY/2021, 03/JUN/2021, 25/JUN/2021, 30/JUL/2021, 21/AUG/2021 ON DAY 0
     Route: 041
     Dates: start: 20210422
  2. GAZYVA [Suspect]
     Active Substance: OBINUTUZUMAB
     Indication: Follicular lymphoma
     Dosage: ON DAY 1, DAY 8, DAY 15
     Route: 042
     Dates: start: 20210916
  3. GAZYVA [Suspect]
     Active Substance: OBINUTUZUMAB
     Dosage: ON DAY 1
     Route: 042
     Dates: start: 20211018
  4. CYCLOPHOSPHAMIDE [Concomitant]
     Active Substance: CYCLOPHOSPHAMIDE
     Indication: Follicular lymphoma
     Dosage: ON 22/APR/2021, 19/MAY/2021, 03/JUN/2021, 25/JUN/2021, 30/JUL/2021, 21/AUG/2021 ON DAY 1
     Dates: start: 20210422
  5. DOXORUBICIN HYDROCHLORIDE [Concomitant]
     Active Substance: DOXORUBICIN HYDROCHLORIDE
     Indication: Follicular lymphoma
     Dosage: ON 22/APR/2021, 19/MAY/2021, 03/JUN/2021, 25/JUN/2021, 30/JUL/2021, 21/AUG/2021 ON DAY 1
     Dates: start: 20210422
  6. VINCRISTINE [Concomitant]
     Active Substance: VINCRISTINE
     Indication: Follicular lymphoma
     Dosage: ON 22/APR/2021, 19/MAY/2021, 03/JUN/2021, 25/JUN/2021, 30/JUL/2021, 21/AUG/2021 ON DAY 1
     Dates: start: 20210422
  7. PREDNISONE [Concomitant]
     Active Substance: PREDNISONE
     Indication: Follicular lymphoma
     Dosage: ON 22/APR/2021, 19/MAY/2021, 03/JUN/2021, 25/JUN/2021, 30/JUL/2021, 21/AUG/2021 FROM DAY 1 TO DAY 5
     Dates: start: 20210422
  8. BENDAMUSTINE [Concomitant]
     Active Substance: BENDAMUSTINE
     Indication: Follicular lymphoma
     Dosage: AT 175MG ON DAY 1, 150MG ON DAY 2
     Dates: start: 20210916
  9. BENDAMUSTINE [Concomitant]
     Active Substance: BENDAMUSTINE
     Dosage: AT 175MG ON DAY 1, 150MG ON DAY 2
     Dates: start: 20211018
  10. METOPROLOL [Concomitant]
     Active Substance: METOPROLOL
     Indication: Hypertension
  11. AMLODIPINE [Concomitant]
     Active Substance: AMLODIPINE BESYLATE
     Indication: Hypertension
  12. BENAZEPRIL [Concomitant]
     Active Substance: BENAZEPRIL HYDROCHLORIDE
     Indication: Hypertension
  13. ENTECAVIR [Concomitant]
     Active Substance: ENTECAVIR
     Indication: Chronic hepatitis B

REACTIONS (2)
  - Myelosuppression [Unknown]
  - Periodontitis [Recovering/Resolving]

NARRATIVE: CASE EVENT DATE: 20210723
